FAERS Safety Report 8266946-1 (Version None)
Quarter: 2012Q2

REPORT INFORMATION
  Report Type: 
  Country: None (occurrence: None)
  Receive Date: 20120404
  Receipt Date: 20120404
  Transmission Date: 20120825
  Serious: No
  Sender: FDA-Public Use
  Company Number: None

PATIENT
  Age: 66 Year
  Sex: Male

DRUGS (5)
  1. FLUOXETINE [Concomitant]
  2. LATANOPROST [Concomitant]
  3. BACTRIM DS [Concomitant]
  4. REVLIMID [Suspect]
     Indication: MULTIPLE MYELOMA
     Dosage: REVLIMID 10MG DAILY ORALLY
     Route: 048
     Dates: start: 20111201, end: 20120201
  5. ACYCLOVIR [Concomitant]

REACTIONS (1)
  - LEUKOPENIA [None]
